FAERS Safety Report 5948977-7 (Version None)
Quarter: 2008Q4

REPORT INFORMATION
  Report Type: 
  Country: None (occurrence: None)
  Receive Date: 20081111
  Receipt Date: 20081030
  Transmission Date: 20090506
  Serious: Yes (Other)
  Sender: FDA-Public Use
  Company Number: VE-PFIZER INC-2008083502

PATIENT
  Sex: Male

DRUGS (5)
  1. CHAMPIX [Suspect]
     Indication: SMOKING CESSATION THERAPY
     Route: 048
     Dates: start: 20080729
  2. QUETIAPINE FUMARATE [Concomitant]
  3. DIAZEPAM [Concomitant]
  4. FLURAZEPAM [Concomitant]
  5. AMLODIPINE [Concomitant]

REACTIONS (5)
  - ADVERSE EVENT [None]
  - ANXIETY [None]
  - DIZZINESS [None]
  - DRUG INEFFECTIVE [None]
  - SOMNOLENCE [None]
